FAERS Safety Report 5491142-0 (Version None)
Quarter: 2007Q4

REPORT INFORMATION
  Report Type: 
  Country: None (occurrence: None)
  Receive Date: 20071019
  Receipt Date: 20071008
  Transmission Date: 20080405
  Serious: Yes (Other)
  Sender: FDA-Public Use
  Company Number: GB-PFIZER INC-2007084496

PATIENT
  Age: 55 Year
  Sex: Male

DRUGS (1)
  1. ANTITHYMOCYTE IMMUNOGLOBULIN SOLUTION, STERILE [Suspect]
     Indication: HYPOGAMMAGLOBULINAEMIA

REACTIONS (1)
  - NON-CARDIOGENIC PULMONARY OEDEMA [None]
